FAERS Safety Report 8495460-3 (Version None)
Quarter: 2012Q3

REPORT INFORMATION
  Report Type: 
  Country: None (occurrence: None)
  Receive Date: 20120709
  Receipt Date: 20120629
  Transmission Date: 20120928
  Serious: Yes (Other)
  Sender: FDA-Public Use
  Company Number: US-ASTRAZENECA-2012SE44416

PATIENT
  Sex: Female

DRUGS (6)
  1. METOPROLOL SUCCINATE [Suspect]
     Route: 065
     Dates: start: 20120301
  2. CALCIUM CHANNEL BLOCKER [Concomitant]
  3. METOPROLOL SUCCINATE [Suspect]
     Route: 065
  4. ATENOLOL [Suspect]
     Route: 048
  5. TOPROL-XL [Suspect]
     Route: 048
     Dates: start: 20060101
  6. TOPROL-XL [Suspect]
     Route: 048

REACTIONS (6)
  - FATIGUE [None]
  - MALAISE [None]
  - CHEST PAIN [None]
  - CARDIOMYOPATHY [None]
  - HEADACHE [None]
  - NAUSEA [None]
